FAERS Safety Report 11656665 (Version 1)
Quarter: 2015Q4

REPORT INFORMATION
  Report Type: Spontaneous
  Country: US (occurrence: US)
  Receive Date: 20151023
  Receipt Date: 20151023
  Transmission Date: 20160304
  Serious: Yes (Hospitalization, Disabling, Other)
  Sender: FDA-Public Use
  Company Number: US-BAYER-2015-446486

PATIENT
  Age: 52 Year
  Sex: Female

DRUGS (1)
  1. CIPRO [Suspect]
     Active Substance: CIPROFLOXACIN HYDROCHLORIDE
     Indication: URINARY TRACT INFECTION
     Dosage: UNK

REACTIONS (9)
  - Autoimmune disorder [None]
  - Electrocardiogram abnormal [None]
  - Arthralgia [None]
  - Abasia [None]
  - Eye movement disorder [None]
  - Inflammation [None]
  - Knee operation [None]
  - Gulf war syndrome [None]
  - Rash [None]
